FAERS Safety Report 6672744-2 (Version None)
Quarter: 2010Q2

REPORT INFORMATION
  Report Type: 
  Country: None (occurrence: None)
  Receive Date: 20100406
  Receipt Date: 20100322
  Transmission Date: 20101027
  Serious: Yes (Life-Threatening, Hospitalization)
  Sender: FDA-Public Use
  Company Number: AUR-APL-2010-00849

PATIENT
  Age: 55 Year
  Sex: Female
  Weight: 91.4 kg

DRUGS (5)
  1. FLUOXETINE [Suspect]
     Indication: SUICIDE ATTEMPT
     Dosage: A FEW CAPSULES-INGEST.
  2. ZIPRASIDONE 40MG CAPSULES [Suspect]
     Indication: SUICIDE ATTEMPT
     Dosage: 150 CAPSULES - INGESTION
  3. BENZTROPINE 1MG TABLETS [Suspect]
     Dosage: ^A FEW^
  4. TRAZODONE TABLETS (POSSIBLE) [Suspect]
     Dosage: ^SMALL NUMBER^
  5. ALCOHOL [Suspect]
     Dosage: ONE PINT - ORAL
     Route: 048

REACTIONS (16)
  - BLOOD MAGNESIUM DECREASED [None]
  - BLOOD PHOSPHORUS DECREASED [None]
  - BLOOD THYROID STIMULATING HORMONE INCREASED [None]
  - COGNITIVE DISORDER [None]
  - DRY MOUTH [None]
  - ELECTROCARDIOGRAM QT PROLONGED [None]
  - FLUSHING [None]
  - MALAISE [None]
  - MYDRIASIS [None]
  - NAUSEA [None]
  - OVERDOSE [None]
  - SKIN WARM [None]
  - SUICIDE ATTEMPT [None]
  - TORSADE DE POINTES [None]
  - VENTRICULAR FIBRILLATION [None]
  - VOMITING [None]
